FAERS Safety Report 17111715 (Version 1)
Quarter: 2019Q4

REPORT INFORMATION
  Report Type: Spontaneous
  Country: US (occurrence: US)
  Receive Date: 20191204
  Receipt Date: 20191204
  Transmission Date: 20200122
  Serious: Yes (Other)
  Sender: FDA-Public Use
  Company Number: US-AMNEAL PHARMACEUTICALS-2019-AMRX-02948

PATIENT

DRUGS (1)
  1. RANITIDINE. [Suspect]
     Active Substance: RANITIDINE
     Indication: PRODUCT USED FOR UNKNOWN INDICATION
     Dosage: UNK
     Route: 065
     Dates: start: 2005

REACTIONS (5)
  - Seizure [Unknown]
  - Urinary tract infection [Unknown]
  - Cerebrovascular accident [Unknown]
  - Renal disorder [Unknown]
  - Neoplasm malignant [Unknown]

NARRATIVE: CASE EVENT DATE: 2005
